FAERS Safety Report 9953234 (Version 1)
Quarter: 2014Q1

REPORT INFORMATION
  Report Type: Report from Study
  Country: US (occurrence: US)
  Receive Date: 20140304
  Receipt Date: 20140304
  Transmission Date: 20141002
  Serious: No
  Sender: FDA-Public Use
  Company Number: US-ABBVIE-13P-163-1077250-00

PATIENT
  Age: 55 Year
  Sex: Male

DRUGS (10)
  1. HUMIRA [Suspect]
     Indication: RHEUMATOID ARTHRITIS
     Dates: start: 201301
  2. PANTOPRAZOLE [Concomitant]
     Dosage: 1 PILL IN THE AM, 1 PILL IN THE PM
  3. HYDROCHLOROTHIAZIDE [Concomitant]
     Indication: BLOOD PRESSURE
  4. AMLODIPINE [Concomitant]
     Indication: BLOOD PRESSURE
  5. PREDNISONE [Concomitant]
     Indication: RHEUMATOID ARTHRITIS
  6. FOLIC ACID [Concomitant]
     Indication: VITAMIN SUPPLEMENTATION
     Dosage: EXCEPT TUESDAY
  7. METHOTREXATE [Concomitant]
     Indication: RHEUMATOID ARTHRITIS
     Dosage: 6 PILLS EVERY TUEDSAY
  8. HYDROXYCHLOROQUINE [Concomitant]
     Indication: RHEUMATOID ARTHRITIS
     Dosage: 1 PILL
  9. NAPROXEN [Concomitant]
     Indication: ARTHRALGIA
  10. SUMATRIPTAN [Concomitant]
     Indication: MIGRAINE

REACTIONS (3)
  - Fatigue [Not Recovered/Not Resolved]
  - Injection site pain [Not Recovered/Not Resolved]
  - Acne [Not Recovered/Not Resolved]
